FAERS Safety Report 16580675 (Version 1)
Quarter: 2019Q3

REPORT INFORMATION
  Report Type: Spontaneous
  Country: IT (occurrence: IT)
  Receive Date: 20190716
  Receipt Date: 20190716
  Transmission Date: 20191004
  Serious: Yes (Death, Hospitalization)
  Sender: FDA-Public Use
  Company Number: IT-ELI_LILLY_AND_COMPANY-IT201907006308

PATIENT
  Sex: Female

DRUGS (2)
  1. CYRAMZA [Suspect]
     Active Substance: RAMUCIRUMAB
     Indication: GASTRIC CANCER
     Dosage: UNK, UNKNOWN
     Route: 065
     Dates: start: 20190430
  2. TAXOL [Concomitant]
     Active Substance: PACLITAXEL
     Indication: GASTRIC CANCER
     Dosage: UNK, UNKNOWN
     Route: 065
     Dates: start: 20190430

REACTIONS (5)
  - Dyspnoea at rest [Unknown]
  - Pulmonary embolism [Unknown]
  - Dyspnoea exertional [Unknown]
  - Pyrexia [Unknown]
  - Death [Fatal]

NARRATIVE: CASE EVENT DATE: 201905
